FAERS Safety Report 4355628-4 (Version None)
Quarter: 2004Q2

REPORT INFORMATION
  Report Type: 
  Country: None (occurrence: None)
  Receive Date: 20040505
  Receipt Date: 20040423
  Transmission Date: 20050107
  Serious: Yes (Death, Life-Threatening, Other)
  Sender: FDA-Public Use
  Company Number: 2003114990

PATIENT
  Age: 73 Year
  Sex: Male

DRUGS (4)
  1. FELDENE [Suspect]
     Indication: ARTHRALGIA
     Dosage: 20 MG (DAILY), ORAL
     Route: 048
     Dates: start: 20030730
  2. ARTHROTEC [Suspect]
     Indication: ARTHRALGIA
     Dosage: ORAL
     Route: 048
     Dates: start: 20030201
  3. APOREX (PARACETAMOL, DEXTROPROPOXYPHENE HYDROCHLORIDE) [Concomitant]
  4. CODEINE PHOSPHATE AND ACETAMINOPHEN [Concomitant]

REACTIONS (4)
  - CIRCULATORY COLLAPSE [None]
  - DUODENAL ULCER HAEMORRHAGE [None]
  - DUODENAL ULCER PERFORATION [None]
  - RENAL FAILURE [None]
